FAERS Safety Report 14754007 (Version 4)
Quarter: 2019Q1

REPORT INFORMATION
  Report Type: Spontaneous
  Country: US (occurrence: US)
  Receive Date: 20180412
  Receipt Date: 20190125
  Transmission Date: 20190417
  Serious: Yes (Hospitalization)
  Sender: FDA-Public Use
  Company Number: US-ACTELION-A-US2018-170464

PATIENT
  Age: 14 Month
  Sex: Female

DRUGS (3)
  1. BACTRIM [Concomitant]
     Active Substance: SULFAMETHOXAZOLE\TRIMETHOPRIM
  2. TRACLEER [Suspect]
     Active Substance: BOSENTAN
     Indication: PULMONARY ARTERIAL HYPERTENSION
     Dosage: 15.625 MG, BID
     Route: 048
     Dates: start: 20171017
  3. TRACLEER [Suspect]
     Active Substance: BOSENTAN
     Dosage: 62.5 MG, QD
     Route: 048

REACTIONS (5)
  - Leukaemia [Unknown]
  - Rhinovirus infection [Recovered/Resolved]
  - Viral infection [Recovered/Resolved]
  - Cardiac operation [Recovering/Resolving]
  - Gastrointestinal tube removal [Recovered/Resolved]

NARRATIVE: CASE EVENT DATE: 20180403
